FAERS Safety Report 22224364 (Version 28)
Quarter: 2025Q2

REPORT INFORMATION
  Report Type: Report from Study
  Country: BR (occurrence: BR)
  Receive Date: 20230418
  Receipt Date: 20250618
  Transmission Date: 20250717
  Serious: Yes (Life-Threatening, Hospitalization, Other)
  Sender: TAKEDA
  Company Number: BR-TAKEDA-BR201913209

PATIENT
  Age: 12 Year
  Sex: Male
  Weight: 25 kg

DRUGS (27)
  1. IDURSULFASE [Suspect]
     Active Substance: IDURSULFASE
     Indication: Mucopolysaccharidosis II
  2. IDURSULFASE [Suspect]
     Active Substance: IDURSULFASE
     Indication: Fabry^s disease
  3. IDURSULFASE [Suspect]
     Active Substance: IDURSULFASE
     Dosage: 2 DOSAGE FORM, 1/WEEK
     Dates: start: 20210206
  4. IDURSULFASE [Suspect]
     Active Substance: IDURSULFASE
  5. IDURSULFASE [Suspect]
     Active Substance: IDURSULFASE
  6. IDURSULFASE [Suspect]
     Active Substance: IDURSULFASE
  7. IDURSULFASE [Suspect]
     Active Substance: IDURSULFASE
     Dosage: 3 DOSAGE FORM, 1/WEEK
  8. IDURSULFASE [Suspect]
     Active Substance: IDURSULFASE
     Dosage: 2.5 DOSAGE FORM, 1/WEEK
     Dates: start: 20230404
  9. IDURSULFASE [Suspect]
     Active Substance: IDURSULFASE
     Dosage: 2.5 DOSAGE FORM, 1/WEEK
  10. IDURSULFASE [Suspect]
     Active Substance: IDURSULFASE
  11. IDURSULFASE [Suspect]
     Active Substance: IDURSULFASE
     Dosage: 15 MILLIGRAM, 1/WEEK
  12. IDURSULFASE [Suspect]
     Active Substance: IDURSULFASE
     Dosage: 3 DOSAGE FORM, 1/WEEK
  13. IDURSULFASE [Suspect]
     Active Substance: IDURSULFASE
     Dosage: 7.5 MILLILITER, 1/WEEK
  14. IDURSULFASE [Suspect]
     Active Substance: IDURSULFASE
     Dosage: 2.5 DOSAGE FORM, 1/WEEK
  15. IDURSULFASE [Suspect]
     Active Substance: IDURSULFASE
  16. IDURSULFASE [Suspect]
     Active Substance: IDURSULFASE
  17. IDURSULFASE [Suspect]
     Active Substance: IDURSULFASE
     Dosage: 2.5 DOSAGE FORM, 1/WEEK
  18. IDURSULFASE [Suspect]
     Active Substance: IDURSULFASE
  19. IDURSULFASE [Suspect]
     Active Substance: IDURSULFASE
     Dosage: 7.5 MILLIGRAM, 1/WEEK
  20. IDURSULFASE [Suspect]
     Active Substance: IDURSULFASE
     Dosage: UNK UNK, 1/WEEK
  21. IDURSULFASE [Suspect]
     Active Substance: IDURSULFASE
  22. IDURSULFASE [Suspect]
     Active Substance: IDURSULFASE
     Dosage: UNK UNK, 1/WEEK
  23. IDURSULFASE [Suspect]
     Active Substance: IDURSULFASE
  24. IDURSULFASE [Suspect]
     Active Substance: IDURSULFASE
  25. HYDROXYZINE HYDROCHLORIDE [Concomitant]
     Active Substance: HYDROXYZINE HYDROCHLORIDE
     Indication: Product used for unknown indication
  26. PERICIAZINE [Concomitant]
     Active Substance: PERICIAZINE
     Indication: Sleep disorder
  27. PERICIAZINE [Concomitant]
     Active Substance: PERICIAZINE
     Indication: Psychomotor hyperactivity

REACTIONS (36)
  - Near drowning [Recovering/Resolving]
  - Respiratory arrest [Recovering/Resolving]
  - Apnoea [Unknown]
  - Apallic syndrome [Unknown]
  - Aspiration [Recovering/Resolving]
  - Respiratory disorder [Recovered/Resolved]
  - Cough [Recovered/Resolved]
  - Psychomotor hyperactivity [Unknown]
  - Gait inability [Unknown]
  - Illness [Unknown]
  - Incorrect dose administered [Unknown]
  - Inappropriate schedule of product administration [Not Recovered/Not Resolved]
  - Product dose omission issue [Unknown]
  - Product prescribing error [Unknown]
  - Product availability issue [Unknown]
  - Dysphagia [Unknown]
  - Dehydration [Unknown]
  - Weight increased [Unknown]
  - Influenza [Recovering/Resolving]
  - Secretion discharge [Recovering/Resolving]
  - Dysphonia [Recovering/Resolving]
  - Product use issue [Unknown]
  - Product supply issue [Recovered/Resolved]
  - Bronchospasm [Unknown]
  - Tonsillitis [Recovered/Resolved]
  - Crying [Recovered/Resolved]
  - Liver disorder [Recovered/Resolved]
  - Pain [Recovered/Resolved]
  - Hyperthermia [Recovered/Resolved]
  - Weight decreased [Unknown]
  - Blister [Recovered/Resolved]
  - Apathy [Unknown]
  - Oropharyngeal pain [Unknown]
  - Pharyngeal erythema [Unknown]
  - Ear infection [Recovered/Resolved]
  - Pyrexia [Recovering/Resolving]

NARRATIVE: CASE EVENT DATE: 20211105
